FAERS Safety Report 13574175 (Version 1)
Quarter: 2017Q2

REPORT INFORMATION
  Report Type: Spontaneous
  Country: IR (occurrence: IR)
  Receive Date: 20170523
  Receipt Date: 20170523
  Transmission Date: 20170830
  Serious: Yes (Hospitalization, Other)
  Sender: FDA-Public Use
  Company Number: IR-AMGEN-IRNSP2017076331

PATIENT
  Age: 17 Year
  Sex: Female
  Weight: 100 kg

DRUGS (2)
  1. NPLATE [Suspect]
     Active Substance: ROMIPLOSTIM
     Indication: IMMUNE THROMBOCYTOPENIC PURPURA
     Dosage: 250 MUG, QWK
     Route: 058
  2. IMMUNOGLOBULIN I.V [Suspect]
     Active Substance: HUMAN IMMUNOGLOBULIN G
     Indication: THROMBOCYTOPENIA
     Dosage: 20 MG, QD
     Route: 042

REACTIONS (6)
  - Platelet count decreased [Unknown]
  - Drug ineffective [Unknown]
  - Coma [Unknown]
  - Seizure [Unknown]
  - Intracranial venous sinus thrombosis [Not Recovered/Not Resolved]
  - Headache [Unknown]
